FAERS Safety Report 24576898 (Version 2)
Quarter: 2024Q4

REPORT INFORMATION
  Report Type: Spontaneous
  Country: JP (occurrence: JP)
  Receive Date: 20241104
  Receipt Date: 20241108
  Transmission Date: 20250115
  Serious: Yes (Other)
  Sender: PFIZER
  Company Number: JP-PFIZER INC-PV202400139270

PATIENT
  Age: 67 Year
  Sex: Female

DRUGS (1)
  1. COMIRNATY (BRETOVAMERAN) [Suspect]
     Active Substance: BRETOVAMERAN
     Indication: COVID-19 immunisation
     Dosage: DOSE 1, 0.3 ML SINGLE
     Route: 030
     Dates: start: 202410, end: 202410

REACTIONS (3)
  - Type 1 diabetes mellitus [Not Recovered/Not Resolved]
  - Diabetic ketoacidosis [Unknown]
  - Impaired insulin secretion [Unknown]

NARRATIVE: CASE EVENT DATE: 20241021
